FAERS Safety Report 10082990 (Version 3)
Quarter: 2014Q2

REPORT INFORMATION
  Report Type: Spontaneous
  Country: US (occurrence: US)
  Receive Date: 20140417
  Receipt Date: 20140428
  Transmission Date: 20141212
  Serious: No
  Sender: FDA-Public Use
  Company Number: US-009507513-1403USA009880

PATIENT
  Sex: Male
  Weight: 61.68 kg

DRUGS (9)
  1. TICE BCG LIVE [Suspect]
     Indication: BLADDER CANCER
     Dosage: UNK
     Dates: start: 20120918
  2. TICE BCG LIVE [Suspect]
     Dosage: UNK
     Dates: start: 20120925
  3. TICE BCG LIVE [Suspect]
     Dosage: UNK
     Dates: start: 20121002
  4. TICE BCG LIVE [Suspect]
     Dosage: UNK
     Dates: start: 20121009
  5. TICE BCG LIVE [Suspect]
     Dosage: UNK
     Dates: start: 20121016
  6. TICE BCG LIVE [Suspect]
     Dosage: UNK
     Dates: start: 20131015
  7. TICE BCG LIVE [Suspect]
     Dosage: UNK
     Dates: start: 20131029
  8. TICE BCG LIVE [Suspect]
     Dosage: UNK
     Dates: start: 20131105
  9. TICE BCG LIVE [Suspect]
     Dosage: UNK
     Dates: start: 20131112

REACTIONS (3)
  - Influenza like illness [Recovering/Resolving]
  - Dysuria [Recovering/Resolving]
  - Pollakiuria [Recovering/Resolving]
